FAERS Safety Report 7379854-5 (Version None)
Quarter: 2011Q1

REPORT INFORMATION
  Report Type: 
  Country: None (occurrence: None)
  Receive Date: 20110329
  Receipt Date: 20110315
  Transmission Date: 20110831
  Serious: Yes (Death)
  Sender: FDA-Public Use
  Company Number: US-CELGENEUS-163-21880-11030252

PATIENT
  Sex: Female

DRUGS (7)
  1. VALTREX [Concomitant]
     Route: 065
  2. FLUIDS [Concomitant]
     Route: 051
     Dates: start: 20110201
  3. REVLIMID [Suspect]
     Indication: MULTIPLE MYELOMA
     Dosage: 25 MILLIGRAM
     Route: 048
     Dates: start: 20110122, end: 20110215
  4. PERCOCET [Concomitant]
     Route: 065
  5. PREVACID [Concomitant]
     Route: 065
  6. AMBIEN [Concomitant]
     Route: 065
  7. OXYCONTIN [Concomitant]
     Dosage: 60 MILLIGRAM
     Route: 065

REACTIONS (1)
  - MULTIPLE MYELOMA [None]
